FAERS Safety Report 6632449-0 (Version None)
Quarter: 2010Q1

REPORT INFORMATION
  Report Type: 
  Country: None (occurrence: None)
  Receive Date: 20100312
  Receipt Date: 20091118
  Transmission Date: 20100710
  Serious: Yes (Other)
  Sender: FDA-Public Use
  Company Number: 205371

PATIENT
  Sex: Female
  Weight: 70 kg

DRUGS (5)
  1. AVONEX [Suspect]
     Indication: MULTIPLE SCLEROSIS
     Route: 030
     Dates: start: 20000101, end: 20040601
  2. AVONEX [Suspect]
     Route: 030
     Dates: start: 20040601
  3. AVONEX [Suspect]
     Route: 030
  4. MEDICATION (NOS) [Concomitant]
     Indication: POLLAKIURIA
  5. MEDICATION (NOS) [Concomitant]
     Indication: DRUG USE FOR UNKNOWN INDICATION

REACTIONS (10)
  - ANGER [None]
  - CONVULSION [None]
  - EMOTIONAL DISTRESS [None]
  - FALL [None]
  - LIMB INJURY [None]
  - OEDEMA PERIPHERAL [None]
  - PAIN IN EXTREMITY [None]
  - POLLAKIURIA [None]
  - TOOTH DISORDER [None]
  - TREMOR [None]
